FAERS Safety Report 5650207-0 (Version None)
Quarter: 2008Q1

REPORT INFORMATION
  Report Type: 
  Country: None (occurrence: None)
  Receive Date: 20080222
  Receipt Date: 20080219
  Transmission Date: 20080703
  Serious: Yes (Life-Threatening)
  Sender: FDA-Public Use
  Company Number: 200712378

PATIENT
  Age: 38 Year
  Sex: Female

DRUGS (15)
  1. SANDOGLOBULIN [Suspect]
     Indication: MUSCULAR WEAKNESS
     Dosage: 10 G,ONCE,IV,IV,IV
     Route: 042
     Dates: start: 20071003, end: 20071003
  2. SANDOGLOBULIN [Suspect]
     Indication: MUSCULAR WEAKNESS
     Dosage: 10 G,ONCE,IV,IV,IV
     Route: 042
     Dates: start: 20071003, end: 20071003
  3. SANDOGLOBULIN [Suspect]
     Indication: MUSCULAR WEAKNESS
     Dosage: 10 G,ONCE,IV,IV,IV
     Route: 042
     Dates: start: 20071003, end: 20071003
  4. SANDOGLOBULIN [Suspect]
  5. SANDOGLOBULIN [Suspect]
  6. TEGRETOL [Concomitant]
  7. MESTINON [Concomitant]
  8. LIORESAL [Concomitant]
  9. HYDROCORTISONE [Concomitant]
  10. HEPTAMYL [Concomitant]
  11. IMOVANE [Concomitant]
  12. MANTADIX [Concomitant]
  13. TARDYFERON [Concomitant]
  14. FORLAX [Concomitant]
  15. DEROXAT [Concomitant]

REACTIONS (3)
  - MYOCARDIAL INFARCTION [None]
  - PULMONARY EMBOLISM [None]
  - SINUS TACHYCARDIA [None]
